FAERS Safety Report 18533956 (Version 1)
Quarter: 2020Q4

REPORT INFORMATION
  Report Type: Spontaneous
  Country: BR (occurrence: BR)
  Receive Date: 20201123
  Receipt Date: 20201123
  Transmission Date: 20210114
  Serious: Yes (Other)
  Sender: FDA-Public Use
  Company Number: JP-SUNOVION-2020SUN003454

PATIENT
  Age: 44 Year
  Sex: Female

DRUGS (3)
  1. LATUDA [Suspect]
     Active Substance: LURASIDONE HYDROCHLORIDE
     Indication: PRODUCT USED FOR UNKNOWN INDICATION
     Dosage: 80 MG
     Route: 065
     Dates: start: 2019
  2. CARBOLITIUM [Concomitant]
     Active Substance: LITHIUM CARBONATE
     Dosage: UNK
  3. NALTREXONA [Concomitant]
     Dosage: 50 MG

REACTIONS (2)
  - Blood prolactin increased [Unknown]
  - Prolactin-producing pituitary tumour [Not Recovered/Not Resolved]

NARRATIVE: CASE EVENT DATE: 202009
